FAERS Safety Report 25740475 (Version 2)
Quarter: 2025Q3

REPORT INFORMATION
  Report Type: Spontaneous
  Country: EU (occurrence: EU)
  Receive Date: 20250829
  Receipt Date: 20250915
  Transmission Date: 20251020
  Serious: Yes (Hospitalization, Other)
  Sender: MYLAN
  Company Number: EU-VERTEX PHARMACEUTICALS-2025-012988

PATIENT
  Age: 14 Year
  Sex: Male

DRUGS (27)
  1. METHOTREXATE [Suspect]
     Active Substance: METHOTREXATE
     Indication: B precursor type acute leukaemia
  2. METHOTREXATE [Suspect]
     Active Substance: METHOTREXATE
  3. METHOTREXATE [Suspect]
     Active Substance: METHOTREXATE
  4. METHOTREXATE [Suspect]
     Active Substance: METHOTREXATE
  5. METHOTREXATE [Suspect]
     Active Substance: METHOTREXATE
  6. METHOTREXATE [Suspect]
     Active Substance: METHOTREXATE
  7. METHOTREXATE [Suspect]
     Active Substance: METHOTREXATE
  8. PREDNISONE [Suspect]
     Active Substance: PREDNISONE
     Indication: B precursor type acute leukaemia
     Dosage: 60 MILLIGRAM/SQ. METER, QD
  9. DEXAMETHASONE [Suspect]
     Active Substance: DEXAMETHASONE
     Indication: B precursor type acute leukaemia
     Dosage: 10 MILLIGRAM/SQ. METER, QD
  10. DEXAMETHASONE [Suspect]
     Active Substance: DEXAMETHASONE
     Dosage: UNK, QD (MILLIGRAM PER SQUARE METRE)( )
  11. DOXORUBICIN [Suspect]
     Active Substance: DOXORUBICIN
     Indication: B precursor type acute leukaemia
  12. DAUNORUBICIN [Suspect]
     Active Substance: DAUNORUBICIN
     Indication: B precursor type acute leukaemia
  13. PEGASPARGASE [Suspect]
     Active Substance: PEGASPARGASE
     Indication: B precursor type acute leukaemia
  14. PEGASPARGASE [Suspect]
     Active Substance: PEGASPARGASE
  15. PEGASPARGASE [Suspect]
     Active Substance: PEGASPARGASE
  16. CYCLOPHOSPHAMIDE [Suspect]
     Active Substance: CYCLOPHOSPHAMIDE
     Indication: B precursor type acute leukaemia
     Dosage: 1000 MILLIGRAM/SQ. METER, BID
  17. CYCLOPHOSPHAMIDE [Suspect]
     Active Substance: CYCLOPHOSPHAMIDE
  18. MERCAPTOPURINE [Suspect]
     Active Substance: MERCAPTOPURINE
     Indication: B precursor type acute leukaemia
     Dosage: 60 MILLIGRAM/SQ. METER, QD
  19. MERCAPTOPURINE [Suspect]
     Active Substance: MERCAPTOPURINE
     Dosage: 25 MILLIGRAM/SQ. METER, QD
  20. MERCAPTOPURINE [Suspect]
     Active Substance: MERCAPTOPURINE
     Dosage: 50 MILLIGRAM/SQ. METER, QD
  21. DEXAMETHASONE [Suspect]
     Active Substance: DEXAMETHASONE
     Indication: B precursor type acute leukaemia
     Dosage: 6 MILLIGRAM/SQ. METER, QD
  22. VINCRISTINE [Suspect]
     Active Substance: VINCRISTINE
     Indication: B precursor type acute leukaemia
  23. CYTARABINE [Suspect]
     Active Substance: CYTARABINE
     Indication: B precursor type acute leukaemia
  24. CYTARABINE [Suspect]
     Active Substance: CYTARABINE
  25. THIOGUANINE [Suspect]
     Active Substance: THIOGUANINE
     Indication: B precursor type acute leukaemia
     Dosage: 60 MILLIGRAM/SQ. METER, QD
  26. KALYDECO [Concomitant]
     Active Substance: IVACAFTOR
     Indication: Cystic fibrosis
  27. ELEXACAFTOR\IVACAFTOR\TEZACAFTOR [Concomitant]
     Active Substance: ELEXACAFTOR\IVACAFTOR\TEZACAFTOR
     Indication: Cystic fibrosis

REACTIONS (12)
  - Diabetes mellitus [Unknown]
  - Device related thrombosis [Unknown]
  - Acute kidney injury [Unknown]
  - Pneumonia [Unknown]
  - Pneumonia fungal [Unknown]
  - Pneumonia viral [Unknown]
  - Neutropenia [Unknown]
  - Thrombocytopenia [Unknown]
  - Hepatotoxicity [Unknown]
  - Weight decreased [Unknown]
  - Mucosal inflammation [Unknown]
  - Vomiting [Unknown]
